FAERS Safety Report 7624171-9 (Version None)
Quarter: 2011Q3

REPORT INFORMATION
  Report Type: 
  Country: None (occurrence: None)
  Receive Date: 20110720
  Receipt Date: 20110720
  Transmission Date: 20111222
  Serious: Yes (Hospitalization)
  Sender: FDA-Public Use
  Company Number: None

PATIENT
  Age: 50 Year
  Sex: Male
  Weight: 77.11 kg

DRUGS (1)
  1. AVELOX [Suspect]

REACTIONS (8)
  - RENAL FAILURE ACUTE [None]
  - RASH [None]
  - HAEMATOCHEZIA [None]
  - PHOTOPHOBIA [None]
  - HYPOAESTHESIA [None]
  - BLOOD TEST ABNORMAL [None]
  - ATRIAL FIBRILLATION [None]
  - SKIN EXFOLIATION [None]
